FAERS Safety Report 8759605 (Version 2)
Quarter: 2013Q4

REPORT INFORMATION
  Report Type: Spontaneous
  Country: US (occurrence: US)
  Receive Date: 20120829
  Receipt Date: 20131101
  Transmission Date: 20140711
  Serious: No
  Sender: FDA-Public Use
  Company Number: US-009507513-1208USA001156

PATIENT
  Age: 48 Year
  Sex: Male
  Weight: 83.9 kg

DRUGS (11)
  1. PEG-INTRON [Suspect]
     Dosage: UNK, QW
     Route: 058
  2. ZOLOFT [Concomitant]
     Dosage: UNK
  3. BENADRYL [Concomitant]
     Dosage: UNK
  4. IBUPROFEN [Concomitant]
     Dosage: UNK
  5. PREPARATION H HEMORRHOIDAL OINTMENT [Concomitant]
  6. VITAMINS (UNSPECIFIED) [Concomitant]
     Dosage: UNK
  7. HYDROCORT (HYDROCORTISONE ACETATE) [Concomitant]
     Dosage: UNK
  8. IMODIUM A-D [Concomitant]
     Dosage: UNK
  9. VITAMIN B (UNSPECIFIED) [Concomitant]
     Dosage: UNK
  10. RIBAVIRIN [Concomitant]
     Dosage: UNK
  11. MILK THISTLE [Concomitant]
     Dosage: UNK

REACTIONS (4)
  - Vomiting [Recovered/Resolved]
  - Decreased appetite [Recovered/Resolved]
  - Headache [Unknown]
  - Rash [Recovering/Resolving]
